FAERS Safety Report 9040034 (Version 1)
Quarter: 2013Q1

REPORT INFORMATION
  Report Type: Report from Study
  Country: US (occurrence: US)
  Receive Date: 20130130
  Receipt Date: 20130130
  Transmission Date: 20140127
  Serious: No
  Sender: FDA-Public Use
  Company Number: US-ABBOTT-12P-163-0951407-00

PATIENT
  Age: 46 Year
  Sex: Female

DRUGS (4)
  1. HUMIRA 40 MG/0.8 ML PEN [Suspect]
     Indication: CROHN^S DISEASE
     Dosage: LOADING DOSE
     Dates: start: 20120525, end: 20120525
  2. HUMIRA 40 MG/0.8 ML PEN [Suspect]
     Dosage: LOADING DOSE
     Dates: start: 20120608, end: 20120608
  3. HUMIRA 40 MG/0.8 ML PEN [Suspect]
     Dates: start: 20120622
  4. PREVACID [Concomitant]
     Dosage: 1 TAB DAILY AS NEEDED

REACTIONS (2)
  - Flatulence [Recovered/Resolved]
  - Eructation [Recovered/Resolved]
